FAERS Safety Report 16273235 (Version 3)
Quarter: 2019Q2

REPORT INFORMATION
  Report Type: Spontaneous
  Country: JP (occurrence: JP)
  Receive Date: 20190506
  Receipt Date: 20190618
  Transmission Date: 20190711
  Serious: Yes (Other)
  Sender: FDA-Public Use
  Company Number: JP-BRISTOL-MYERS SQUIBB COMPANY-BMS-2019-035338

PATIENT
  Age: 76 Year
  Sex: Female

DRUGS (1)
  1. ORENCIA [Suspect]
     Active Substance: ABATACEPT
     Indication: PRODUCT USED FOR UNKNOWN INDICATION
     Dosage: UNK
     Route: 058
     Dates: start: 201801, end: 201803

REACTIONS (7)
  - Rheumatoid arthritis [Unknown]
  - Bronchitis [Unknown]
  - Pain [Unknown]
  - Weight decreased [Unknown]
  - Haemoptysis [Unknown]
  - Adverse drug reaction [Unknown]
  - Inflammation [Unknown]
